FAERS Safety Report 8437274-6 (Version None)
Quarter: 2012Q2

REPORT INFORMATION
  Report Type: 
  Country: None (occurrence: None)
  Receive Date: 20120614
  Receipt Date: 20120605
  Transmission Date: 20120825
  Serious: Yes (Other)
  Sender: FDA-Public Use
  Company Number: GB-PFIZER INC-2012087891

PATIENT
  Age: 78 Year
  Sex: Female

DRUGS (2)
  1. IBUPROFEN [Suspect]
     Indication: OSTEOARTHRITIS
     Dosage: 200 MG, 3X/DAY
     Route: 048
     Dates: start: 20100616
  2. SYTRON [Concomitant]
     Indication: IRON DEFICIENCY
     Dosage: UNK

REACTIONS (1)
  - IRON DEFICIENCY ANAEMIA [None]
